FAERS Safety Report 5378250-X (Version None)
Quarter: 2007Q3

REPORT INFORMATION
  Report Type: 
  Country: None (occurrence: None)
  Receive Date: 20070702
  Receipt Date: 20070625
  Transmission Date: 20080115
  Serious: Yes (Hospitalization)
  Sender: FDA-Public Use
  Company Number: 163-21880-07060038

PATIENT
  Age: 81 Year
  Sex: Male

DRUGS (3)
  1. REVLIMID [Suspect]
     Indication: MULTIPLE MYELOMA
     Dosage: SEE IMAGE
     Route: 048
     Dates: start: 20070427
  2. DEXAMETHASONE TAB [Concomitant]
  3. FOLIC ACID [Concomitant]

REACTIONS (4)
  - DIALYSIS [None]
  - PANCYTOPENIA [None]
  - RENAL DISORDER [None]
  - RENAL FAILURE [None]
